FAERS Safety Report 8176508-2 (Version None)
Quarter: 2012Q1

REPORT INFORMATION
  Report Type: 
  Country: None (occurrence: None)
  Receive Date: 20120301
  Receipt Date: 20120222
  Transmission Date: 20120608
  Serious: Yes (Hospitalization)
  Sender: FDA-Public Use
  Company Number: US-PFIZER INC-2012052518

PATIENT
  Sex: Female

DRUGS (9)
  1. RIFAMPICIN [Suspect]
  2. ETANERCEPT [Suspect]
     Indication: PSORIASIS
  3. LISINOPRIL [Concomitant]
  4. OMEPRAZOLE [Concomitant]
  5. SEPTRA DS [Suspect]
  6. LOVASTATIN [Concomitant]
  7. ZOLOFT [Concomitant]
  8. DIPROLENE AF [Concomitant]
  9. ATARAX [Concomitant]

REACTIONS (2)
  - PHARYNGEAL OEDEMA [None]
  - ADVERSE DRUG REACTION [None]
